FAERS Safety Report 9940070 (Version 1)
Quarter: 2014Q1

REPORT INFORMATION
  Report Type: Report from Study
  Country: US (occurrence: US)
  Receive Date: 20140303
  Receipt Date: 20140303
  Transmission Date: 20141002
  Serious: No
  Sender: FDA-Public Use
  Company Number: US-ABBVIE-13P-163-1032458-00

PATIENT
  Sex: Male

DRUGS (1)
  1. HUMIRA [Suspect]
     Indication: ANKYLOSING SPONDYLITIS
     Route: 058
     Dates: start: 20120929

REACTIONS (6)
  - Blood glucose increased [Unknown]
  - Cough [Unknown]
  - Nasal congestion [Unknown]
  - Pruritus [Unknown]
  - Laboratory test abnormal [Unknown]
  - Injection site pain [Unknown]
